FAERS Safety Report 8942601 (Version 2)
Quarter: 2012Q4

REPORT INFORMATION
  Report Type: 
  Country: JP (occurrence: JP)
  Receive Date: 20121204
  Receipt Date: 20121214
  Transmission Date: 20130627
  Serious: No
  Sender: FDA-Public Use
  Company Number: JP-JNJFOC-20121112892

PATIENT
  Age: 8 None
  Sex: Male

DRUGS (2)
  1. DUROTEP MT [Suspect]
     Indication: PAIN
     Route: 062
     Dates: start: 201210
  2. ETIZOLAM [Concomitant]
     Route: 048

REACTIONS (4)
  - Somnolence [Recovered/Resolved]
  - Wrong technique in drug usage process [Unknown]
  - Drug prescribing error [Unknown]
  - Dyspnoea [Unknown]
